FAERS Safety Report 5445169-5 (Version None)
Quarter: 2007Q3

REPORT INFORMATION
  Report Type: 
  Country: None (occurrence: None)
  Receive Date: 20070906
  Receipt Date: 20070827
  Transmission Date: 20080115
  Serious: Yes (Other)
  Sender: FDA-Public Use
  Company Number: US-PFIZER INC-2007071532

PATIENT
  Sex: Male

DRUGS (1)
  1. ZOLOFT [Suspect]
     Route: 064
     Dates: start: 20050101, end: 20060101

REACTIONS (3)
  - DRUG EXPOSURE DURING PREGNANCY [None]
  - HYPERTENSION [None]
  - RESPIRATORY RATE INCREASED [None]
